FAERS Safety Report 23312888 (Version 1)
Quarter: 2023Q4

REPORT INFORMATION
  Report Type: Spontaneous
  Country: US (occurrence: US)
  Receive Date: 20231219
  Receipt Date: 20231219
  Transmission Date: 20240110
  Serious: Yes (Hospitalization, Other)
  Sender: FDA-Public Use
  Company Number: US-TAKEDA-2023TUS121021

PATIENT
  Sex: Male
  Weight: 82 kg

DRUGS (2)
  1. LIVTENCITY [Suspect]
     Active Substance: MARIBAVIR
     Indication: Muscular dystrophy
     Dosage: 200 MILLIGRAM, BID
     Route: 065
     Dates: start: 20230123
  2. LEVOFLOXACIN [Concomitant]
     Active Substance: LEVOFLOXACIN
     Dosage: UNK
     Route: 065

REACTIONS (6)
  - Nasopharyngitis [Unknown]
  - Tremor [Unknown]
  - Urosepsis [Unknown]
  - Haemorrhoids [Unknown]
  - Diverticulitis [Unknown]
  - Vomiting [Unknown]
